FAERS Safety Report 9910653 (Version 2)
Quarter: 2014Q1

REPORT INFORMATION
  Report Type: Spontaneous
  Country: US (occurrence: US)
  Receive Date: 20140219
  Receipt Date: 20140219
  Transmission Date: 20141002
  Serious: No
  Sender: FDA-Public Use
  Company Number: US-GILEAD-2012-0053588

PATIENT
  Age: 52 Year
  Sex: Male
  Weight: 53.97 kg

DRUGS (12)
  1. LETAIRIS [Suspect]
     Indication: PRODUCT USED FOR UNKNOWN INDICATION
     Dosage: 10 MG, UNK
     Route: 048
     Dates: start: 20110323
  2. ASPIRIN [Concomitant]
  3. CEPHALEXIN                         /00145501/ [Concomitant]
  4. CHLORHEXIDINE GLUCONATE [Concomitant]
  5. DIOVAN [Concomitant]
  6. DOCUSATE SODIUM [Concomitant]
  7. FERROUS SULFATE [Concomitant]
  8. FEXOFENADINE [Concomitant]
  9. FLUCONAZOLE [Concomitant]
  10. HYDROCODONE W/ACETAMINOPHEN [Concomitant]
  11. NEXIUM                             /01479302/ [Concomitant]
  12. TAMSULOSIN [Concomitant]

REACTIONS (3)
  - Raynaud^s phenomenon [Unknown]
  - Skin ulcer [Unknown]
  - Unevaluable event [Unknown]
